FAERS Safety Report 25229731 (Version 1)
Quarter: 2025Q2

REPORT INFORMATION
  Report Type: Spontaneous
  Country: US (occurrence: US)
  Receive Date: 20250423
  Receipt Date: 20250423
  Transmission Date: 20250717
  Serious: Yes (Death, Life-Threatening, Hospitalization)
  Sender: ACCORD
  Company Number: US-MLMSERVICE-20250404-PI468860-00203-1

PATIENT
  Age: 60 Year
  Sex: Female

DRUGS (31)
  1. LISINOPRIL [Suspect]
     Active Substance: LISINOPRIL
     Indication: Hypertension
     Route: 048
  2. TACROLIMUS [Suspect]
     Active Substance: TACROLIMUS
     Indication: Immunosuppressant drug therapy
     Dosage: 2.5 MG IN NACL 0.9% 250 ML IVPB DAILY
  3. SODIUM CHLORIDE [Concomitant]
     Active Substance: SODIUM CHLORIDE
     Dosage: 250 ML IVPB DAILY (FOR 2.5 MG TACROLIMUS)
  4. DEXTROSE [Concomitant]
     Active Substance: DEXTROSE MONOHYDRATE
     Dosage: 50 ML IVPB DAILY (FOR 1 MG FOLIC ACID)
  5. ACYCLOVIR [Concomitant]
     Active Substance: ACYCLOVIR
     Indication: Antiviral prophylaxis
     Route: 048
  6. ALLOPURINOL [Concomitant]
     Active Substance: ALLOPURINOL
     Route: 048
  7. DESVENLAFAXINE SUCCINATE [Concomitant]
     Active Substance: DESVENLAFAXINE SUCCINATE
     Dosage: EXTENDED RELEASE
     Route: 048
  8. ISAVUCONAZONIUM SULFATE [Concomitant]
     Active Substance: ISAVUCONAZONIUM SULFATE
     Dosage: 2X186 MG
     Route: 048
  9. LEVOFLOXACIN [Concomitant]
     Active Substance: LEVOFLOXACIN
     Indication: Prophylaxis
     Route: 048
  10. LEVOTHYROXINE [Concomitant]
     Active Substance: LEVOTHYROXINE
     Route: 048
  11. MIDOSTAURIN [Concomitant]
     Active Substance: MIDOSTAURIN
     Dosage: 2X50 MG BID ON DAYS 8 TO 21 OF EACH CYCLE
     Route: 048
  12. MIRABEGRON [Concomitant]
     Active Substance: MIRABEGRON
     Dosage: EXTENDED RELEASE
     Route: 048
  13. ONDANSETRON [Concomitant]
     Active Substance: ONDANSETRON
     Dosage: AS NEEDED
     Route: 048
  14. SIMVASTATIN [Concomitant]
     Active Substance: SIMVASTATIN
     Route: 048
  15. TRANEXAMIC ACID [Concomitant]
     Active Substance: TRANEXAMIC ACID
     Dosage: 2X650 MG TID
     Route: 048
  16. MYCOPHENOLATE MOFETIL [Concomitant]
     Active Substance: MYCOPHENOLATE MOFETIL
     Indication: Immunosuppressant drug therapy
  17. MEROPENEM [Concomitant]
     Active Substance: MEROPENEM
     Indication: Evidence based treatment
     Dosage: 1G IN NACL 0.9 % 100 ML IVPB DAILY
  18. FILGRASTIM [Concomitant]
     Active Substance: FILGRASTIM
     Indication: Evidence based treatment
  19. AMINOCAPROICATE [Concomitant]
     Dosage: 4000 MG IN DEXTROSE 5% 250 ML EVERY 6 HOURS IV
  20. FOLIC ACID [Concomitant]
     Active Substance: FOLIC ACID
     Dosage: 1 MG IN DEXTROSE 5 % 50 ML IVPB DAILY
  21. FAMOTIDINE [Concomitant]
     Active Substance: FAMOTIDINE
     Route: 048
  22. LORATADINE [Concomitant]
     Active Substance: LORATADINE
     Route: 048
  23. MELATONIN [Concomitant]
     Active Substance: MELATONIN
     Dosage: NIGHTLY
     Route: 048
  24. PANTOPRAZOLE [Concomitant]
     Active Substance: PANTOPRAZOLE
  25. POLYETHYLENE GLYCOL [Concomitant]
     Active Substance: POLYETHYLENE GLYCOL
     Dosage: 17G PACKET DAILY AS NEEDED PO
     Route: 048
  26. PROCHLORPERAZINE [Concomitant]
     Active Substance: PROCHLORPERAZINE
     Dosage: AS NEEDED
     Route: 030
  27. TRAMADOL [Concomitant]
     Active Substance: TRAMADOL
     Dosage: AS NEEDED
     Route: 048
  28. SODIUM CHLORIDE [Concomitant]
     Active Substance: SODIUM CHLORIDE
     Dosage: 1G IN NACL 0.9 % 100 ML IVPB DAILY FOR MEROPENEM
  29. DEXTROSE [Concomitant]
     Active Substance: DEXTROSE MONOHYDRATE
     Dosage: 250 ML IVPB DAILY (FOR 4000 MG AMINOCAPROIC ACID)
  30. MEROPENEM [Concomitant]
     Active Substance: MEROPENEM
     Indication: Febrile neutropenia
     Dosage: 1G IN NACL 0.9 % 100 ML IVPB DAILY
  31. FILGRASTIM [Concomitant]
     Active Substance: FILGRASTIM
     Indication: Febrile neutropenia

REACTIONS (2)
  - Angioedema [Fatal]
  - Obstructive airways disorder [Fatal]
